FAERS Safety Report 21445290 (Version 1)
Quarter: 2022Q4

REPORT INFORMATION
  Report Type: Spontaneous
  Country: US (occurrence: None)
  Receive Date: 20221010
  Receipt Date: 20221010
  Transmission Date: 20230113
  Serious: Yes (Hospitalization)
  Sender: FDA-Public Use
  Company Number: None

PATIENT
  Age: 76 Year
  Sex: Female

DRUGS (2)
  1. TACROLIMUS [Suspect]
     Active Substance: TACROLIMUS
     Indication: Liver transplant
     Dosage: 0.5 MG ORAL?TAKE 1 CAPSULE (0.5 MG TOTAL) BY MOUTH 2 (TWO) TIMES A DAY.
     Route: 048
     Dates: start: 20210126
  2. DOXYCYC MONO TAB 100MG [Concomitant]

REACTIONS (1)
  - Haematological infection [None]

NARRATIVE: CASE EVENT DATE: 20220918
